FAERS Safety Report 4732229-7 (Version None)
Quarter: 2005Q3

REPORT INFORMATION
  Report Type: 
  Country: None (occurrence: None)
  Receive Date: 20050725
  Receipt Date: 20040720
  Transmission Date: 20060218
  Serious: Yes (Death, Other)
  Sender: FDA-Public Use
  Company Number: USA-2004-0016081

PATIENT
  Age: 31 Year
  Sex: Male
  Weight: 75.3 kg

DRUGS (6)
  1. MORPHINE SULFATE [Suspect]
  2. XANAX [Suspect]
  3. ALCOHOL (ETHANOL) [Suspect]
  4. CAFFEINE (CAFFEINE) [Suspect]
  5. CANNABINOIDS (CANNABIS) [Suspect]
  6. NICOTINE [Suspect]

REACTIONS (2)
  - ACCIDENTAL OVERDOSE [None]
  - POLYSUBSTANCE ABUSE [None]
